FAERS Safety Report 12615602 (Version 1)
Quarter: 2016Q3

REPORT INFORMATION
  Report Type: Spontaneous
  Country: US (occurrence: US)
  Receive Date: 20160802
  Receipt Date: 20160802
  Transmission Date: 20161109
  Serious: No
  Sender: FDA-Public Use
  Company Number: US-BAYER-2016-148647

PATIENT
  Age: 28 Year
  Sex: Female

DRUGS (1)
  1. OCELLA [Suspect]
     Active Substance: DROSPIRENONE\ETHINYL ESTRADIOL
     Dosage: 3 MG, UNK
     Route: 048
     Dates: start: 20160724

REACTIONS (1)
  - Incorrect product storage [None]
